FAERS Safety Report 6549798-7 (Version None)
Quarter: 2010Q1

REPORT INFORMATION
  Report Type: 
  Country: None (occurrence: None)
  Receive Date: 20100125
  Receipt Date: 20100114
  Transmission Date: 20100710
  Serious: Yes (Other)
  Sender: FDA-Public Use
  Company Number: CA-BAXTER-2009BH016815

PATIENT
  Age: 73 Year
  Sex: Male
  Weight: 77 kg

DRUGS (11)
  1. GAMMAGARD LIQUID [Suspect]
     Indication: HYPOGAMMAGLOBULINAEMIA
     Route: 042
     Dates: start: 20091007, end: 20091007
  2. GAMMAGARD LIQUID [Suspect]
     Indication: NON-HODGKIN'S LYMPHOMA
     Route: 042
     Dates: start: 20091007, end: 20091007
  3. GAMMAGARD LIQUID [Suspect]
     Indication: SECONDARY IMMUNODEFICIENCY
     Route: 042
     Dates: start: 20091007, end: 20091007
  4. GAMMAGARD LIQUID [Suspect]
     Indication: WALDENSTROM'S MACROGLOBULINAEMIA
     Route: 042
     Dates: start: 20091007, end: 20091007
  5. WARFARIN [Concomitant]
     Route: 048
     Dates: start: 20091007
  6. PREGABALIN [Concomitant]
     Route: 048
     Dates: start: 20091007
  7. ROSUVASTATIN CALCIUM [Concomitant]
     Route: 048
     Dates: start: 20091006
  8. ATIVAN [Concomitant]
     Route: 048
  9. ZINC SULFATE [Concomitant]
  10. ZOPICLONE [Concomitant]
     Route: 048
  11. OTHER CHEMOTHERAPEUTICS [Concomitant]

REACTIONS (11)
  - ABDOMINAL PAIN [None]
  - BACK PAIN [None]
  - CHEST PAIN [None]
  - CHILLS [None]
  - DIZZINESS [None]
  - DYSPNOEA [None]
  - ERYTHEMA [None]
  - HYPERSENSITIVITY [None]
  - HYPERTENSION [None]
  - MUSCLE SPASMS [None]
  - TREMOR [None]
